FAERS Safety Report 24074202 (Version 1)
Quarter: 2024Q3

REPORT INFORMATION
  Report Type: Report from Study
  Country: FR (occurrence: FR)
  Receive Date: 20240710
  Receipt Date: 20240710
  Transmission Date: 20241017
  Serious: Yes (Death)
  Sender: TEVA
  Company Number: FR-TEVA-VS-3217185

PATIENT
  Age: 49 Year
  Sex: Male

DRUGS (1)
  1. SILDENAFIL [Suspect]
     Active Substance: SILDENAFIL
     Indication: Drug abuse
     Route: 065

REACTIONS (1)
  - Drug abuse [Fatal]
